FAERS Safety Report 7712444-0 (Version None)
Quarter: 2011Q3

REPORT INFORMATION
  Report Type: 
  Country: None (occurrence: None)
  Receive Date: 20110823
  Receipt Date: 20110808
  Transmission Date: 20111222
  Serious: Yes (Other)
  Sender: FDA-Public Use
  Company Number: 7050314

PATIENT
  Age: 49 Year
  Sex: Female

DRUGS (13)
  1. LEVOTHYROXINE SODIUM [Suspect]
     Indication: PRODUCT USED FOR UNKNOWN INDICATION
     Dosage: 1 DF (1 DF,1 IN 1 D) ORAL
     Dates: start: 20060101
  2. PRITORPLUS /01506701/ (TELMISARTAN, HYDROCHLOROTHIAZIDE) [Concomitant]
  3. ENALAPRIL MALEATE [Suspect]
     Indication: PRODUCT USED FOR UNKNOWN INDICATION
     Dosage: ORAL
     Route: 048
  4. METFORMIN (METFORMIN) (500 MG, TABLET) (METFORMIN) [Concomitant]
  5. ATORVASTATIN CALCIUM [Suspect]
     Indication: PRODUCT USED FOR UNKNOWN INDICATION
     Dosage: ORAL
     Route: 048
     Dates: start: 20070101
  6. CRESTOR (ROSUVASTATIN) (75 MG) (ROSUVASTATIN) [Concomitant]
  7. IPERTEN (MANIDIPINE HYDROCHLORIDE) (10 MG) (MANIDIPINE) [Concomitant]
  8. VASTAREL (TRIMETAZIDINE HYDROCHLORIDE) (TRIMETAZIDINE) [Concomitant]
  9. FUROSEMIDE [Suspect]
     Indication: PRODUCT USED FOR UNKNOWN INDICATION
     Dosage: ORAL
     Route: 048
     Dates: end: 20091109
  10. POTASSIUM CHLORIDE [Suspect]
     Indication: PRODUCT USED FOR UNKNOWN INDICATION
     Dosage: 2 DF (1 DF,2 IN 1 D) ORAL
     Route: 048
     Dates: end: 20101109
  11. AMLODIPINE BESYLATE [Suspect]
     Indication: PRODUCT USED FOR UNKNOWN INDICATION
     Dosage: ORAL
     Route: 048
     Dates: start: 20070101, end: 20101109
  12. TEMERIT (NEBIVOLOL) (5 MG) (NEBIVOLOL) [Concomitant]
  13. MEDIATOR (BENFLUOREX HYDROCHLORIDE) (TABLET) (BENFLUOREX) [Suspect]
     Indication: TYPE 2 DIABETES MELLITUS
     Dosage: ORAL
     Route: 048
     Dates: start: 20000916, end: 20091101

REACTIONS (6)
  - DYSPNOEA EXERTIONAL [None]
  - MITRAL VALVE INCOMPETENCE [None]
  - AORTIC VALVE DISEASE [None]
  - PERICARDITIS [None]
  - PULMONARY HYPERTENSION [None]
  - MITRAL VALVE DISEASE [None]
